FAERS Safety Report 8389209-2 (Version None)
Quarter: 2012Q2

REPORT INFORMATION
  Report Type: 
  Country: None (occurrence: None)
  Receive Date: 20120528
  Receipt Date: 20120515
  Transmission Date: 20120825
  Serious: Yes (Other)
  Sender: FDA-Public Use
  Company Number: JP-UCBSA-051027

PATIENT
  Age: 50 Year
  Sex: Male
  Weight: 83.3 kg

DRUGS (5)
  1. FAMOTIDINE [Suspect]
     Dosage: DAILY DOSE:10MG
     Route: 048
     Dates: start: 20120113, end: 20120202
  2. MIYA BM [Concomitant]
     Dosage: DAILY DOSE:12 GM
     Route: 048
     Dates: start: 20120113
  3. SODIUM CHLORIDE [Concomitant]
     Dosage: DAILY DOSE: 9GM
     Dates: start: 20120123
  4. KEPPRA [Suspect]
     Indication: EPILEPSY
     Route: 048
     Dates: start: 20120126, end: 20120202
  5. PHENOBARBITAL TAB [Suspect]
     Indication: EPILEPSY
     Route: 048
     Dates: start: 20120126, end: 20120202

REACTIONS (1)
  - WHITE BLOOD CELL COUNT DECREASED [None]
